FAERS Safety Report 5277560-4 (Version None)
Quarter: 2007Q1

REPORT INFORMATION
  Report Type: 
  Country: None (occurrence: None)
  Receive Date: 20061214
  Receipt Date: 20060203
  Transmission Date: 20070707
  Serious: Yes (Other)
  Sender: FDA-Public Use
  Company Number: HQWYE730009FEB06

PATIENT
  Age: 38 Year
  Sex: Female

DRUGS (1)
  1. CHILDREN'S ADVIL COLD (IBUPROFEN/PSEUDOEPHEDRINE [Suspect]
     Dosage: TEASPOON, ONCE, ORAL
     Route: 048
     Dates: start: 20060202, end: 20060202

REACTIONS (1)
  - DYSGEUSIA [None]
